FAERS Safety Report 6347626-6 (Version None)
Quarter: 2009Q3

REPORT INFORMATION
  Report Type: 
  Country: None (occurrence: None)
  Receive Date: 20090910
  Receipt Date: 20090710
  Transmission Date: 20100115
  Serious: Yes (Hospitalization)
  Sender: FDA-Public Use
  Company Number: BE-JNJFOC-20061200837

PATIENT
  Sex: Male
  Weight: 73 kg

DRUGS (7)
  1. TMC114 [Suspect]
  2. TMC114 [Suspect]
     Indication: HIV INFECTION
  3. NORVIR [Suspect]
     Indication: HIV INFECTION
     Route: 048
  4. EPIVIR [Concomitant]
     Indication: HIV INFECTION
     Route: 048
  5. RETROVIR [Concomitant]
     Indication: HIV INFECTION
     Route: 048
  6. VIREAD [Concomitant]
     Indication: HIV INFECTION
     Route: 048
  7. AMOXICILLIN AND CLAVULANATE POTASSIUM [Concomitant]
     Indication: BRONCHOPNEUMONIA

REACTIONS (2)
  - CELLULITIS ORBITAL [None]
  - IMMUNE RECONSTITUTION SYNDROME [None]
